FAERS Safety Report 9154449 (Version 1)
Quarter: 2013Q1

REPORT INFORMATION
  Report Type: Report from Study
  Country: US (occurrence: US)
  Receive Date: 20130311
  Receipt Date: 20130311
  Transmission Date: 20140127
  Serious: No
  Sender: FDA-Public Use
  Company Number: US-ABBOTT-12P-163-0931800-00

PATIENT
  Age: 53 Year
  Sex: Female

DRUGS (5)
  1. LUPRON DEPOT 11.25 MG [Suspect]
     Indication: UTERINE LEIOMYOMA
     Dates: start: 20120426
  2. MULTIVITAMINS WITH MINERALS [Concomitant]
     Indication: MINERAL SUPPLEMENTATION
  3. MULTIVITAMINS WITH MINERALS [Concomitant]
     Indication: VITAMIN SUPPLEMENTATION
  4. MEDROXYPROGESTERONE ACETATE [Concomitant]
     Indication: PRODUCT USED FOR UNKNOWN INDICATION
  5. TRIAMTERENE AND HYDROCHLOROTHIAZIDE [Concomitant]
     Indication: PRODUCT USED FOR UNKNOWN INDICATION

REACTIONS (1)
  - Vaginal haemorrhage [Not Recovered/Not Resolved]
